FAERS Safety Report 11548656 (Version 4)
Quarter: 2015Q4

REPORT INFORMATION
  Report Type: Spontaneous
  Country: DE (occurrence: JP)
  Receive Date: 20150924
  Receipt Date: 20151029
  Transmission Date: 20160304
  Serious: Yes (Other)
  Sender: FDA-Public Use
  Company Number: JP-FRI-1000079648

PATIENT
  Age: 83 Year
  Sex: Female
  Weight: 47 kg

DRUGS (13)
  1. GRAMALIL [Suspect]
     Active Substance: TIAPRIDE HYDROCHLORIDE
     Indication: DEMENTIA
     Dosage: 50 MG
     Route: 048
  2. MEMANTINE. [Suspect]
     Active Substance: MEMANTINE
     Indication: DEMENTIA ALZHEIMER^S TYPE
     Dosage: 10 MG
     Route: 048
     Dates: end: 20150911
  3. LAXOBERON [Concomitant]
     Active Substance: SODIUM PICOSULFATE
  4. RISPERDAL [Suspect]
     Active Substance: RISPERIDONE
     Indication: DEMENTIA
     Dosage: 1 MG
     Route: 048
     Dates: end: 20150910
  5. FUROSEMIDE. [Concomitant]
     Active Substance: FUROSEMIDE
  6. RISPERDAL [Suspect]
     Active Substance: RISPERIDONE
     Dosage: 1 MG
     Route: 048
     Dates: start: 20150925
  7. EVISTA [Concomitant]
     Active Substance: RALOXIFENE HYDROCHLORIDE
  8. SENNOSIDE [Concomitant]
     Active Substance: SENNOSIDES
  9. ROZEREM [Concomitant]
     Active Substance: RAMELTEON
     Dates: start: 20150916
  10. ARICEPT [Suspect]
     Active Substance: DONEPEZIL HYDROCHLORIDE
     Indication: DEMENTIA
     Dosage: 5 MG
     Route: 048
     Dates: end: 20150911
  11. TAIPROTON [Concomitant]
     Active Substance: LANSOPRAZOLE
  12. MEMANTINE. [Suspect]
     Active Substance: MEMANTINE
     Dosage: 10 MG
     Dates: start: 20150919
  13. THYRADIN S [Concomitant]
     Active Substance: LEVOTHYROXINE SODIUM

REACTIONS (5)
  - Miosis [Recovered/Resolved]
  - Gait disturbance [Unknown]
  - Eating disorder [Unknown]
  - Altered state of consciousness [Recovered/Resolved]
  - Bradycardia [Recovered/Resolved]

NARRATIVE: CASE EVENT DATE: 20150910
